FAERS Safety Report 10045466 (Version 1)
Quarter: 2014Q1

REPORT INFORMATION
  Report Type: Spontaneous
  Country: GB (occurrence: GB)
  Receive Date: 20140328
  Receipt Date: 20140328
  Transmission Date: 20141002
  Serious: Yes (Other)
  Sender: FDA-Public Use
  Company Number: GB-009507513-1403GBR011600

PATIENT
  Age: 6 Year
  Sex: Male
  Weight: 25.5 kg

DRUGS (1)
  1. MONTELUKAST SODIUM [Suspect]
     Route: 048
     Dates: start: 20130731, end: 201312

REACTIONS (3)
  - Psychomotor hyperactivity [Recovered/Resolved]
  - Insomnia [Recovered/Resolved]
  - Product substitution issue [Unknown]
